FAERS Safety Report 21335263 (Version 1)
Quarter: 2022Q3

REPORT INFORMATION
  Report Type: Report from Study
  Country: US (occurrence: US)
  Receive Date: 20220915
  Receipt Date: 20220915
  Transmission Date: 20221027
  Serious: Yes (Hospitalization, Other)
  Sender: FDA-Public Use
  Company Number: US-ACADIA PHARMACEUTICALS INC.-ACA-2022-PIM-002818

PATIENT
  Age: 70 Year
  Sex: Male

DRUGS (8)
  1. NUPLAZID [Suspect]
     Active Substance: PIMAVANSERIN TARTRATE
     Indication: Parkinson^s disease
     Dosage: 34 MILLIGRAM, QD
     Route: 048
     Dates: start: 202005
  2. SINEMET [Concomitant]
     Active Substance: CARBIDOPA\LEVODOPA
     Dosage: 25/100 2 TABLETS AT 8 AM AND 1.5 TABLETS SUBSEQUENTLY TID
  3. SINEMET [Concomitant]
     Active Substance: CARBIDOPA\LEVODOPA
     Dosage: 50-200 1 TABLET QHS
  4. DONEPEZIL [Concomitant]
     Active Substance: DONEPEZIL
  5. NORTHERA [Concomitant]
     Active Substance: DROXIDOPA
  6. DOMPERIDONE [Concomitant]
     Active Substance: DOMPERIDONE
  7. CLONAZEPAM [Concomitant]
     Active Substance: CLONAZEPAM
  8. QUETIAPINE [Concomitant]
     Active Substance: QUETIAPINE
     Dosage: 25 MILLIGRAM 1/2 TABLET AT BEDTIME

REACTIONS (1)
  - Pneumonia aspiration [Recovered/Resolved]

NARRATIVE: CASE EVENT DATE: 20220710
